FAERS Safety Report 20296229 (Version 5)
Quarter: 2024Q3

REPORT INFORMATION
  Report Type: Report from Study
  Country: CA (occurrence: CA)
  Receive Date: 20220105
  Receipt Date: 20240908
  Transmission Date: 20241017
  Serious: Yes (Hospitalization, Other)
  Sender: ABBVIE
  Company Number: CA-ABBVIE-22K-028-4218957-00

PATIENT
  Sex: Female

DRUGS (6)
  1. RINVOQ [Suspect]
     Active Substance: UPADACITINIB
     Indication: Rheumatoid arthritis
     Dosage: FORM STRENGTH UNITS: 15 MILLIGRAM, LAST ADMIN : 2021
     Route: 048
     Dates: start: 202104
  2. RINVOQ [Suspect]
     Active Substance: UPADACITINIB
     Indication: Rheumatoid arthritis
     Dosage: FORM STRENGTH UNITS: 15 MILLIGRAM
     Route: 048
     Dates: end: 20221017
  3. RINVOQ [Suspect]
     Active Substance: UPADACITINIB
     Indication: Rheumatoid arthritis
     Dosage: FORM STRENGTH UNITS: 15 MILLIGRAM
     Route: 048
     Dates: start: 2024
  4. RINVOQ [Suspect]
     Active Substance: UPADACITINIB
     Indication: Rheumatoid arthritis
     Dosage: FORM STRENGTH UNITS: 15 MILLIGRAM
     Route: 048
     Dates: end: 20240713
  5. RINVOQ [Suspect]
     Active Substance: UPADACITINIB
     Indication: Rheumatoid arthritis
     Route: 048
  6. RINVOQ [Suspect]
     Active Substance: UPADACITINIB
     Indication: Rheumatoid arthritis
     Route: 048

REACTIONS (16)
  - Urosepsis [Recovered/Resolved]
  - Obstructive nephropathy [Unknown]
  - Lung neoplasm malignant [Unknown]
  - Arteriosclerosis coronary artery [Unknown]
  - Nephrolithiasis [Recovering/Resolving]
  - Amnesia [Unknown]
  - Cough [Not Recovered/Not Resolved]
  - Insomnia [Unknown]
  - Unevaluable event [Unknown]
  - Urinary tract infection [Unknown]
  - Dysuria [Not Recovered/Not Resolved]
  - Discomfort [Unknown]
  - Pyelonephritis [Unknown]
  - Pollakiuria [Unknown]
  - Flank pain [Unknown]
  - Back pain [Unknown]

NARRATIVE: CASE EVENT DATE: 20210101
